FAERS Safety Report 7928701 (Version 11)
Quarter: 2015Q2

REPORT INFORMATION
  Report Type: Spontaneous
  Country: US (occurrence: US)
  Receive Date: 20110503
  Receipt Date: 20150506
  Transmission Date: 20150821
  Serious: Yes (Hospitalization, Disabling, Other)
  Sender: FDA-Public Use
  Company Number: US-009507513-1104USA03485

PATIENT
  Sex: Female
  Weight: 52.61 kg

DRUGS (3)
  1. FOSAMAX [Suspect]
     Active Substance: ALENDRONATE SODIUM
     Indication: PRODUCT USED FOR UNKNOWN INDICATION
     Dosage: 10 MG, UNK
     Route: 048
     Dates: start: 19990921, end: 20030508
  2. FOSAMAX [Suspect]
     Active Substance: ALENDRONATE SODIUM
     Indication: PRODUCT USED FOR UNKNOWN INDICATION
     Route: 048
     Dates: start: 20080623, end: 20090321
  3. THERAPY UNSPECIFIED [Concomitant]
     Active Substance: UNSPECIFIED INGREDIENT
     Indication: HYPERTENSION
     Dates: start: 1997, end: 200907

REACTIONS (61)
  - Haemoglobin decreased [Unknown]
  - Duodenal ulcer [Unknown]
  - Hypothyroidism [Unknown]
  - Contusion [Unknown]
  - Vertebrobasilar insufficiency [Not Recovered/Not Resolved]
  - Spinal osteoarthritis [Unknown]
  - Musculoskeletal chest pain [Unknown]
  - Reproductive tract disorder [Unknown]
  - Abdominal mass [Unknown]
  - Traumatic haematoma [Unknown]
  - Tooth disorder [Unknown]
  - Intramedullary rod insertion [Recovered/Resolved]
  - Hiatus hernia [Unknown]
  - Skeletal injury [Unknown]
  - Insomnia [Unknown]
  - Pelvic mass [Unknown]
  - Epistaxis [Unknown]
  - Contusion [Unknown]
  - Cystitis [Unknown]
  - Osteoarthritis [Unknown]
  - Pain in extremity [Unknown]
  - Melaena [Unknown]
  - Fall [Unknown]
  - Pelvic mass [Recovered/Resolved]
  - Cerebral disorder [Unknown]
  - Dizziness [Unknown]
  - Dizziness [Unknown]
  - Femur fracture [Recovered/Resolved]
  - Helicobacter test positive [Unknown]
  - Diabetes mellitus [Unknown]
  - Bronchitis [Unknown]
  - Cardiac murmur [Unknown]
  - Cheilitis [Unknown]
  - Tooth fracture [Unknown]
  - Oral pain [Unknown]
  - Intervertebral disc space narrowing [Unknown]
  - Osteoarthritis [Unknown]
  - Cellulitis [Recovering/Resolving]
  - Pain in extremity [Unknown]
  - Hypovolaemia [Unknown]
  - Contusion [Unknown]
  - Dermal cyst [Unknown]
  - Diarrhoea [Unknown]
  - Crohn^s disease [Unknown]
  - Gastrointestinal haemorrhage [Unknown]
  - Hypovolaemia [Unknown]
  - Aortic valve stenosis [Unknown]
  - Gastritis [Unknown]
  - Treatment noncompliance [Unknown]
  - Tooth abscess [Unknown]
  - Exostosis [Unknown]
  - Abdominal pain [Unknown]
  - Fall [Recovered/Resolved]
  - Hormone level abnormal [Unknown]
  - Urinary tract infection [Unknown]
  - Hand fracture [Unknown]
  - Dental caries [Unknown]
  - Toothache [Unknown]
  - Mass [Recovering/Resolving]
  - Scoliosis [Unknown]
  - Headache [Unknown]

NARRATIVE: CASE EVENT DATE: 1999
